FAERS Safety Report 19679484 (Version 1)
Quarter: 2021Q3

REPORT INFORMATION
  Report Type: Spontaneous
  Country: FR (occurrence: FR)
  Receive Date: 20210810
  Receipt Date: 20210810
  Transmission Date: 20211014
  Serious: Yes (Death)
  Sender: FDA-Public Use
  Company Number: FR-TEVA-2021-FR-1940461

PATIENT
  Age: 56 Year
  Sex: Male

DRUGS (2)
  1. CHLORHYDRATE DE TRAMADOL [Suspect]
     Active Substance: TRAMADOL HYDROCHLORIDE
     Dosage: UNKNOWN
     Route: 065
     Dates: end: 202008
  2. AMITRIPTYLINE [Suspect]
     Active Substance: AMITRIPTYLINE
     Dosage: UNKNOWN
     Route: 065
     Dates: end: 202008

REACTIONS (1)
  - Poisoning deliberate [Fatal]
